FAERS Safety Report 9307534 (Version 1)
Quarter: 2013Q2

REPORT INFORMATION
  Report Type: Spontaneous
  Country: ZA (occurrence: ZA)
  Receive Date: 20130524
  Receipt Date: 20130524
  Transmission Date: 20140414
  Serious: Yes (Hospitalization, Other)
  Sender: FDA-Public Use
  Company Number: ZA-NOVOPROD-355906

PATIENT
  Age: 36 Year
  Sex: Female
  Weight: 90 kg

DRUGS (2)
  1. NOVOMIX 30 FLEXPEN [Suspect]
     Indication: GESTATIONAL DIABETES
     Dosage: 4 U, TID
     Route: 058
     Dates: start: 20120712, end: 20130114
  2. PROTAPHANE FLEXPEN [Suspect]
     Indication: GESTATIONAL DIABETES
     Dosage: UNK
     Route: 065
     Dates: end: 20130114

REACTIONS (3)
  - Premature rupture of membranes [Unknown]
  - Premature delivery [Unknown]
  - Exposure during pregnancy [Unknown]
